FAERS Safety Report 4590875-8 (Version None)
Quarter: 2005Q1

REPORT INFORMATION
  Report Type: 
  Country: None (occurrence: None)
  Receive Date: 20050225
  Receipt Date: 20040427
  Transmission Date: 20050727
  Serious: No
  Sender: FDA-Public Use
  Company Number: US-GLAXOSMITHKLINE-A0508676A

PATIENT
  Age: 50 Year
  Sex: Male
  Weight: 75.5 kg

DRUGS (5)
  1. ZIAGEN [Suspect]
     Indication: HIV INFECTION
     Dosage: 300MG TWICE PER DAY
     Route: 048
     Dates: start: 20040413, end: 20040427
  2. VIREAD [Concomitant]
  3. CRIXIVAN [Concomitant]
  4. VASOTEC [Concomitant]
  5. CARDIZEM [Concomitant]

REACTIONS (5)
  - ABDOMINAL PAIN [None]
  - FATIGUE [None]
  - PYREXIA [None]
  - RASH [None]
  - RASH ERYTHEMATOUS [None]
